FAERS Safety Report 7775204-0 (Version None)
Quarter: 2011Q3

REPORT INFORMATION
  Report Type: 
  Country: None (occurrence: None)
  Receive Date: 20110923
  Receipt Date: 20110915
  Transmission Date: 20111222
  Serious: Yes (Life-Threatening)
  Sender: FDA-Public Use
  Company Number: JP-BRISTOL-MYERS SQUIBB COMPANY-16042566

PATIENT
  Age: 46 Year
  Sex: Male
  Weight: 60 kg

DRUGS (3)
  1. ROHYPNOL [Concomitant]
     Dosage: TAB
     Dates: start: 19901101
  2. ABILIFY [Suspect]
     Indication: SCHIZOPHRENIA
     Dosage: 4 AND 5 DAYS INTP:22AUG11
     Route: 048
     Dates: start: 20110817
  3. LEVOTOMIN [Concomitant]
     Dosage: TAB
     Dates: start: 19901101

REACTIONS (1)
  - CONVULSION [None]
